FAERS Safety Report 11240925 (Version 1)
Quarter: 2015Q3

REPORT INFORMATION
  Report Type: Report from Study
  Country: US (occurrence: US)
  Receive Date: 20150706
  Receipt Date: 20150706
  Transmission Date: 20151125
  Serious: Yes (Other)
  Sender: FDA-Public Use
  Company Number: US-009507513-1507USA001089

PATIENT

DRUGS (2)
  1. EPTIFIBATIDE. [Suspect]
     Active Substance: EPTIFIBATIDE
     Indication: ISCHAEMIC STROKE
     Dosage: 135 MICROGRAM PER KILOGRAM, ONCE
     Route: 042
  2. EPTIFIBATIDE. [Suspect]
     Active Substance: EPTIFIBATIDE
     Dosage: 0.5 MICROGRAM PER KILOGRAM, UNK
     Route: 042

REACTIONS (1)
  - Haemarthrosis [Unknown]
